FAERS Safety Report 5004768-5 (Version None)
Quarter: 2006Q2

REPORT INFORMATION
  Report Type: 
  Country: None (occurrence: None)
  Receive Date: 20060517
  Receipt Date: 20060512
  Transmission Date: 20061013
  Serious: Yes (Disabling)
  Sender: FDA-Public Use
  Company Number: DE-MERCK-0605DEU00119

PATIENT
  Sex: Female

DRUGS (2)
  1. VIOXX [Suspect]
     Indication: ARTHRALGIA
     Route: 048
     Dates: start: 19991101, end: 20040501
  2. VIOXX [Suspect]
     Indication: BONE PAIN
     Route: 048
     Dates: start: 19991101, end: 20040501

REACTIONS (2)
  - VENOUS THROMBOSIS [None]
  - VISUAL ACUITY REDUCED [None]
